FAERS Safety Report 12237774 (Version 1)
Quarter: 2016Q2

REPORT INFORMATION
  Report Type: Spontaneous
  Country: US (occurrence: None)
  Receive Date: 20160404
  Receipt Date: 20160404
  Transmission Date: 20160815
  Serious: Yes (Disabling)
  Sender: FDA-Public Use
  Company Number: None

PATIENT
  Age: 42 Year
  Sex: Female
  Weight: 80.74 kg

DRUGS (4)
  1. PROBIOTICS [Concomitant]
     Active Substance: PROBIOTICS NOS
  2. LEVOFLOXACIN 500 MG AUROBINDO [Suspect]
     Active Substance: LEVOFLOXACIN
     Indication: PNEUMONIA
     Dosage: 10 TABLET (S) ONCE A DAY TAKEN BY MOUTH
     Route: 048
     Dates: start: 20160304, end: 20160305
  3. RESCUE INHALER [Concomitant]
  4. LISINOPRIL. [Concomitant]
     Active Substance: LISINOPRIL

REACTIONS (4)
  - Arthralgia [None]
  - Quality of life decreased [None]
  - Tendon disorder [None]
  - Pain in extremity [None]

NARRATIVE: CASE EVENT DATE: 20160304
